FAERS Safety Report 5256745-7 (Version None)
Quarter: 2007Q1

REPORT INFORMATION
  Report Type: 
  Country: None (occurrence: None)
  Receive Date: 20070306
  Receipt Date: 20070206
  Transmission Date: 20070707
  Serious: Yes (Disabling)
  Sender: FDA-Public Use
  Company Number: US-ALLERGAN-0600419US

PATIENT
  Sex: Female

DRUGS (4)
  1. BOTOX COSMETIC [Suspect]
     Indication: SKIN WRINKLING
     Dosage: 20 UNITS, SINGLE
     Route: 030
     Dates: start: 20060406, end: 20060406
  2. AMITRIPTYLINE HCL [Concomitant]
     Indication: ANXIETY
     Route: 048
  3. CLIMARA [Concomitant]
     Indication: PROPHYLAXIS
     Route: 062
     Dates: start: 20040101
  4. ESTROGEN NOS [Concomitant]
     Indication: DRUG USE FOR UNKNOWN INDICATION
     Dates: start: 19720101

REACTIONS (11)
  - ANXIETY [None]
  - DISTURBANCE IN ATTENTION [None]
  - DRY EYE [None]
  - EYE PRURITUS [None]
  - FATIGUE [None]
  - INNER EAR DISORDER [None]
  - MIGRAINE [None]
  - NECK PAIN [None]
  - PAIN [None]
  - SENSORY DISTURBANCE [None]
  - SINUSITIS [None]
